FAERS Safety Report 18954566 (Version 1)
Quarter: 2021Q1

REPORT INFORMATION
  Report Type: Spontaneous
  Country: HU (occurrence: HU)
  Receive Date: 20210301
  Receipt Date: 20210301
  Transmission Date: 20210420
  Serious: Yes (Other)
  Sender: FDA-Public Use
  Company Number: HU-ABBVIE-21K-076-3792496-00

PATIENT
  Age: 76 Year
  Sex: Male

DRUGS (5)
  1. IBRUTINIB [Suspect]
     Active Substance: IBRUTINIB
     Indication: PROLYMPHOCYTIC LEUKAEMIA
     Route: 048
     Dates: start: 202003, end: 2020
  2. ENALAPRIL [Concomitant]
     Active Substance: ENALAPRIL
     Indication: PROLYMPHOCYTIC LEUKAEMIA
  3. SPIRONOLACTONE. [Concomitant]
     Active Substance: SPIRONOLACTONE
     Indication: PROLYMPHOCYTIC LEUKAEMIA
  4. TIANEPTINE [Concomitant]
     Active Substance: TIANEPTINE
     Indication: PROLYMPHOCYTIC LEUKAEMIA
  5. DIOSMIN [Concomitant]
     Active Substance: DIOSMIN
     Indication: PROLYMPHOCYTIC LEUKAEMIA

REACTIONS (2)
  - Nephropathy toxic [Recovering/Resolving]
  - Tubulointerstitial nephritis [Recovering/Resolving]

NARRATIVE: CASE EVENT DATE: 2020
